FAERS Safety Report 26113777 (Version 1)
Quarter: 2025Q4

REPORT INFORMATION
  Report Type: Spontaneous
  Country: US (occurrence: US)
  Receive Date: 20251202
  Receipt Date: 20251202
  Transmission Date: 20260118
  Serious: No
  Sender: EMD SERONO INC
  Company Number: US-Merck Healthcare KGaA-2025061078

PATIENT
  Sex: Female

DRUGS (1)
  1. MAVENCLAD [Suspect]
     Active Substance: CLADRIBINE
     Indication: Multiple sclerosis
     Dosage: YEAR ONE MONTH ONE AT A DOSE OF TWO TABLETS FROM DAYS 1 TO 4 AND 1 TABLET ON DAY 5
     Dates: start: 20250825, end: 20250829

REACTIONS (1)
  - Urinary tract infection [Unknown]
